FAERS Safety Report 23748562 (Version 2)
Quarter: 2024Q3

REPORT INFORMATION
  Report Type: Report from Study
  Country: DE (occurrence: DE)
  Receive Date: 20240416
  Receipt Date: 20240910
  Transmission Date: 20241017
  Serious: Yes (Hospitalization)
  Sender: RANBAXY
  Company Number: DE-SUNPHARMA-2024RR-441611AA

PATIENT
  Age: 65 Year
  Sex: Male
  Weight: 98 kg

DRUGS (2)
  1. TILDRAKIZUMAB [Suspect]
     Active Substance: TILDRAKIZUMAB
     Indication: Psoriasis
     Dosage: 200 MILLIGRAM - FIRST INJECTION
     Route: 058
     Dates: start: 20240216
  2. TILDRAKIZUMAB [Suspect]
     Active Substance: TILDRAKIZUMAB
     Dosage: 200 MILLIGRAM - SECOND INJECTION
     Route: 058
     Dates: start: 20240314

REACTIONS (1)
  - Pyelonephritis [Recovered/Resolved]

NARRATIVE: CASE EVENT DATE: 20240322
